FAERS Safety Report 5862750-X (Version None)
Quarter: 2008Q3

REPORT INFORMATION
  Report Type: 
  Country: None (occurrence: None)
  Receive Date: 20080827
  Receipt Date: 20080827
  Transmission Date: 20090109
  Serious: Yes (Other)
  Sender: FDA-Public Use
  Company Number: None

PATIENT
  Sex: Female
  Weight: 61.6892 kg

DRUGS (1)
  1. PROAIR HFA [Suspect]
     Indication: ASTHMA PROPHYLAXIS
     Dosage: 2 PUFFS EVERY 4 HOURS INHAL
     Route: 055
     Dates: start: 20080721, end: 20080723

REACTIONS (2)
  - CHEST DISCOMFORT [None]
  - COUGH [None]
